FAERS Safety Report 23855063 (Version 5)
Quarter: 2024Q3

REPORT INFORMATION
  Report Type: Spontaneous
  Country: US (occurrence: US)
  Receive Date: 20240514
  Receipt Date: 20240813
  Transmission Date: 20241017
  Serious: Yes (Hospitalization, Other)
  Sender: SANOFI AVENTIS
  Company Number: US-SA-SAC20240506000557

PATIENT
  Age: 51 Year
  Sex: Female
  Weight: 127 kg

DRUGS (35)
  1. DUPIXENT [Suspect]
     Active Substance: DUPILUMAB
     Indication: Dermatitis atopic
     Dosage: 300 MG, QOW
     Route: 058
     Dates: start: 20240311, end: 202405
  2. ADVAIR HFA [Concomitant]
     Active Substance: FLUTICASONE PROPIONATE\SALMETEROL XINAFOATE
     Dosage: UNK
  3. ALBUTEROL SULFATE [Concomitant]
     Active Substance: ALBUTEROL SULFATE
     Dosage: UNK
  4. ATORVASTATIN CALCIUM [Concomitant]
     Active Substance: ATORVASTATIN CALCIUM
     Dosage: UNK
  5. ATORVASTATIN CALCIUM [Concomitant]
     Active Substance: ATORVASTATIN CALCIUM
  6. CIMETIDINE [Concomitant]
     Active Substance: CIMETIDINE
     Dosage: UNK
  7. CLONAZEPAM [Concomitant]
     Active Substance: CLONAZEPAM
     Dosage: UNK
  8. HYDROCHLOROTHIAZIDE [Concomitant]
     Active Substance: HYDROCHLOROTHIAZIDE
     Dosage: UNK
  9. HYDROCHLOROTHIAZIDE [Concomitant]
     Active Substance: HYDROCHLOROTHIAZIDE
  10. SINGULAIR [Concomitant]
     Active Substance: MONTELUKAST SODIUM
     Dosage: UNK
  11. WARFARIN SODIUM [Concomitant]
     Active Substance: WARFARIN SODIUM
     Dosage: UNK
  12. GABAPENTIN [Concomitant]
     Active Substance: GABAPENTIN
  13. GABAPENTIN [Concomitant]
     Active Substance: GABAPENTIN
  14. HYDROXYZINE HYDROCHLORIDE [Concomitant]
     Active Substance: HYDROXYZINE HYDROCHLORIDE
  15. ALLEGRA ALLERGY [Concomitant]
     Active Substance: FEXOFENADINE HYDROCHLORIDE
  16. ZYRTEC [Concomitant]
     Active Substance: CETIRIZINE HYDROCHLORIDE
  17. CLARITIN [Concomitant]
     Active Substance: LORATADINE
  18. PROAIR RESPICLICK [Concomitant]
     Active Substance: ALBUTEROL SULFATE
  19. TRELEGY ELLIPTA [Concomitant]
     Active Substance: FLUTICASONE FUROATE\UMECLIDINIUM BROMIDE\VILANTEROL TRIFENATATE
  20. TRELEGY ELLIPTA [Concomitant]
     Active Substance: FLUTICASONE FUROATE\UMECLIDINIUM BROMIDE\VILANTEROL TRIFENATATE
  21. FAMOTIDINE [Concomitant]
     Active Substance: FAMOTIDINE
  22. FAMOTIDINE [Concomitant]
     Active Substance: FAMOTIDINE
  23. SUMATRIPTAN SUCCINATE [Concomitant]
     Active Substance: SUMATRIPTAN SUCCINATE
  24. SUMATRIPTAN SUCCINATE [Concomitant]
     Active Substance: SUMATRIPTAN SUCCINATE
  25. TRAMADOL HCL [Concomitant]
     Active Substance: TRAMADOL HYDROCHLORIDE
  26. CYCLOBENZAPRINE HYDROCHLORIDE [Concomitant]
     Active Substance: CYCLOBENZAPRINE HYDROCHLORIDE
  27. ALBUTEROL\IPRATROPIUM [Concomitant]
     Active Substance: ALBUTEROL\IPRATROPIUM
  28. CLOBETASOL PROPIONATE [Concomitant]
     Active Substance: CLOBETASOL PROPIONATE
  29. MONTELUKAST [Concomitant]
     Active Substance: MONTELUKAST SODIUM
  30. HYDROCORTISONE [Concomitant]
     Active Substance: HYDROCORTISONE\HYDROCORTISONE ACETATE
  31. KETOCONAZOLE [Concomitant]
     Active Substance: KETOCONAZOLE
  32. HYDROXYZINE [Concomitant]
     Active Substance: HYDROXYZINE HYDROCHLORIDE
  33. TRAMADOL [Concomitant]
     Active Substance: TRAMADOL\TRAMADOL HYDROCHLORIDE
  34. METHOCARBAMOL [Concomitant]
     Active Substance: METHOCARBAMOL
  35. METOCLOPRAMIDE [Concomitant]
     Active Substance: METOCLOPRAMIDE

REACTIONS (12)
  - Spinal cord compression [Unknown]
  - Hypoaesthesia [Recovering/Resolving]
  - Paraesthesia [Unknown]
  - Skin swelling [Recovering/Resolving]
  - Pain of skin [Unknown]
  - Injection site rash [Recovering/Resolving]
  - Condition aggravated [Recovering/Resolving]
  - Injection site pruritus [Recovering/Resolving]
  - Condition aggravated [Recovering/Resolving]
  - Drug hypersensitivity [Unknown]
  - Dermatitis atopic [Unknown]
  - Rash [Not Recovered/Not Resolved]

NARRATIVE: CASE EVENT DATE: 20240101
